FAERS Safety Report 6813321-X (Version None)
Quarter: 2010Q3

REPORT INFORMATION
  Report Type: 
  Country: None (occurrence: None)
  Receive Date: 20100701
  Receipt Date: 20100627
  Transmission Date: 20110219
  Serious: Yes (Other)
  Sender: FDA-Public Use
  Company Number: US-BRISTOL-MYERS SQUIBB COMPANY-15168206

PATIENT
  Age: 78 Year
  Sex: Female

DRUGS (8)
  1. CYTOXAN [Suspect]
     Indication: BREAST CANCER
     Route: 042
     Dates: start: 20100503, end: 20100524
  2. CIPRO [Suspect]
     Indication: PROPHYLAXIS
  3. TAXOTERE [Suspect]
     Indication: BREAST CANCER
     Route: 041
     Dates: start: 20100503, end: 20100524
  4. DECADRON [Concomitant]
     Indication: PREMEDICATION
  5. ALOXI [Concomitant]
     Indication: PREMEDICATION
  6. EMEND [Concomitant]
     Indication: PREMEDICATION
  7. NEULASTA [Concomitant]
  8. LISINOPRIL [Concomitant]

REACTIONS (1)
  - RENAL FAILURE ACUTE [None]
